FAERS Safety Report 10532208 (Version 1)
Quarter: 2014Q4

REPORT INFORMATION
  Report Type: Spontaneous
  Country: US (occurrence: US)
  Receive Date: 20141021
  Receipt Date: 20141021
  Transmission Date: 20150529
  Serious: No
  Sender: FDA-Public Use
  Company Number: US-PFIZER INC-2014284892

PATIENT
  Sex: Male

DRUGS (3)
  1. VICTOZA [Interacting]
     Active Substance: LIRAGLUTIDE
  2. VIAGRA [Suspect]
     Active Substance: SILDENAFIL CITRATE
     Dosage: UNK
  3. INSULIN [Concomitant]
     Active Substance: INSULIN NOS
     Indication: DIABETES MELLITUS
     Dosage: UNK

REACTIONS (2)
  - Drug ineffective [Unknown]
  - Drug interaction [Unknown]

NARRATIVE: CASE EVENT DATE: 201410
